FAERS Safety Report 20201082 (Version 6)
Quarter: 2022Q4

REPORT INFORMATION
  Report Type: Other
  Country: DE (occurrence: None)
  Receive Date: 20211217
  Receipt Date: 20221007
  Transmission Date: 20230113
  Serious: No
  Sender: FDA-Public Use
  Company Number: DE-ROCHE-2917566

PATIENT
  Age: 42 Year
  Sex: Male

DRUGS (5)
  1. OCREVUS [Suspect]
     Active Substance: OCRELIZUMAB
     Indication: Relapsing-remitting multiple sclerosis
     Route: 042
     Dates: start: 20210910
  2. OCREVUS [Suspect]
     Active Substance: OCRELIZUMAB
     Route: 042
     Dates: start: 20210910
  3. PANTOPRAZOLE [Concomitant]
     Active Substance: PANTOPRAZOLE
  4. BIFIDOBACTERIUM BIFIDUM [Concomitant]
     Active Substance: BIFIDOBACTERIUM BIFIDUM
     Dosage: MIMBB75 AS NEEDED
  5. DALFAMPRIDINE [Concomitant]
     Active Substance: DALFAMPRIDINE

REACTIONS (8)
  - Flushing [Recovered/Resolved]
  - Dyspepsia [Recovered/Resolved]
  - COVID-19 [Recovered/Resolved]
  - Dyspnoea [Not Recovered/Not Resolved]
  - B-lymphocyte count decreased [Recovered/Resolved]
  - Blood testosterone decreased [Not Recovered/Not Resolved]
  - Osteoporosis [Not Recovered/Not Resolved]
  - Micturition urgency [Recovered/Resolved]

NARRATIVE: CASE EVENT DATE: 20210910
